FAERS Safety Report 9294308 (Version 1)
Quarter: 2013Q2

REPORT INFORMATION
  Report Type: Spontaneous
  Country: US (occurrence: US)
  Receive Date: 20130516
  Receipt Date: 20130516
  Transmission Date: 20140414
  Serious: No
  Sender: FDA-Public Use
  Company Number: US-BANPHARM-20131218

PATIENT
  Age: 71 Year
  Sex: Male
  Weight: 104.33 kg

DRUGS (1)
  1. IBUPROFEN CAPSULES 200 MG [Suspect]
     Dosage: 3 DF, QD,
     Route: 048
     Dates: start: 20120608, end: 20120610

REACTIONS (1)
  - Drug ineffective [Unknown]
